FAERS Safety Report 7725163-1 (Version None)
Quarter: 2011Q3

REPORT INFORMATION
  Report Type: 
  Country: None (occurrence: None)
  Receive Date: 20110901
  Receipt Date: 20110826
  Transmission Date: 20111222
  Serious: Yes (Hospitalization)
  Sender: FDA-Public Use
  Company Number: US-MERCK-1108USA03371

PATIENT
  Sex: Female

DRUGS (5)
  1. TOPAMAX [Concomitant]
     Route: 065
  2. VYTORIN [Concomitant]
     Route: 048
  3. PROZAC [Concomitant]
     Route: 065
  4. JANUMET [Suspect]
     Indication: TYPE 2 DIABETES MELLITUS
     Route: 048
  5. XANAX [Concomitant]
     Route: 065

REACTIONS (4)
  - HYPONATRAEMIA [None]
  - PNEUMONIA [None]
  - LOSS OF CONSCIOUSNESS [None]
  - WRONG TECHNIQUE IN DRUG USAGE PROCESS [None]
